FAERS Safety Report 20885434 (Version 3)
Quarter: 2022Q3

REPORT INFORMATION
  Report Type: Report from Study
  Country: CN (occurrence: CN)
  Receive Date: 20220527
  Receipt Date: 20220825
  Transmission Date: 20221027
  Serious: Yes (Death, Hospitalization, Other)
  Sender: FDA-Public Use
  Company Number: CN-EXELIXIS-XL18422052233

PATIENT
  Age: 63 Year
  Sex: Male
  Weight: 82 kg

DRUGS (8)
  1. CABOZANTINIB [Suspect]
     Active Substance: CABOZANTINIB
     Indication: Hepatocellular carcinoma
     Dosage: 40 MG, QD
     Route: 048
     Dates: start: 20220121, end: 20220228
  2. ATEZOLIZUMAB [Suspect]
     Active Substance: ATEZOLIZUMAB
     Indication: Hepatocellular carcinoma
     Dosage: 1200 MG, Q3WEEKS
     Route: 042
     Dates: start: 20220121, end: 20220210
  3. METOCLOPRAMIDE [Concomitant]
     Active Substance: METOCLOPRAMIDE
  4. URSODIOL [Concomitant]
     Active Substance: URSODIOL
  5. COMPOUND MUJI GRANULES [Concomitant]
  6. LAMIVUDINE [Concomitant]
     Active Substance: LAMIVUDINE
  7. HERBALS\DIAMMONIUM GLYCYRRHIZINATE [Concomitant]
     Active Substance: HERBALS\DIAMMONIUM GLYCYRRHIZINATE
  8. GLUTATHIONE REDUCED [Concomitant]

REACTIONS (3)
  - Malignant neoplasm progression [Fatal]
  - Drug-induced liver injury [Not Recovered/Not Resolved]
  - Ascites [Not Recovered/Not Resolved]

NARRATIVE: CASE EVENT DATE: 20220310
